FAERS Safety Report 7240788-8 (Version None)
Quarter: 2011Q1

REPORT INFORMATION
  Report Type: 
  Country: None (occurrence: None)
  Receive Date: 20110120
  Receipt Date: 20110120
  Transmission Date: 20110831
  Serious: Yes (Hospitalization)
  Sender: FDA-Public Use
  Company Number: None

PATIENT
  Age: 25 Year
  Sex: Male
  Weight: 65 kg

DRUGS (3)
  1. ZOLPIDEM TARTRATE [Suspect]
     Indication: INSOMNIA
     Dosage: 1 QHS PO
     Route: 048
     Dates: start: 20110115, end: 20110116
  2. ZOLPIDEM TARTRATE [Suspect]
     Indication: ANXIETY
     Dosage: 1 QHS PO
     Route: 048
     Dates: start: 20110115, end: 20110116
  3. ZOLPIDEM TARTRATE [Suspect]
     Indication: DEPRESSION
     Dosage: 1 QHS PO
     Route: 048
     Dates: start: 20110115, end: 20110116

REACTIONS (2)
  - SOMNAMBULISM [None]
  - AMNESIA [None]
